FAERS Safety Report 25607322 (Version 1)
Quarter: 2025Q3

REPORT INFORMATION
  Report Type: Spontaneous
  Country: US (occurrence: US)
  Receive Date: 20250725
  Receipt Date: 20250725
  Transmission Date: 20251020
  Serious: Yes (Hospitalization, Other)
  Sender: AMGEN
  Company Number: US-AMGEN-USASP2025141143

PATIENT
  Age: 76 Year
  Sex: Female

DRUGS (10)
  1. PREDNISONE [Suspect]
     Active Substance: PREDNISONE
     Indication: T-cell lymphoma
     Route: 065
  2. PREDNISONE [Suspect]
     Active Substance: PREDNISONE
     Indication: Acute myeloid leukaemia
     Route: 065
  3. CYCLOPHOSPHAMIDE [Concomitant]
     Active Substance: CYCLOPHOSPHAMIDE
     Indication: T-cell lymphoma
  4. CYCLOPHOSPHAMIDE [Concomitant]
     Active Substance: CYCLOPHOSPHAMIDE
     Indication: Acute myeloid leukaemia
  5. DOXORUBICIN [Concomitant]
     Active Substance: DOXORUBICIN
     Indication: T-cell lymphoma
  6. DOXORUBICIN [Concomitant]
     Active Substance: DOXORUBICIN
     Indication: Acute myeloid leukaemia
  7. VINCRISTINE [Concomitant]
     Active Substance: VINCRISTINE
     Indication: Acute myeloid leukaemia
  8. VINCRISTINE [Concomitant]
     Active Substance: VINCRISTINE
     Indication: T-cell lymphoma
  9. EPIRUBICIN [Concomitant]
     Active Substance: EPIRUBICIN
     Indication: T-cell lymphoma
  10. EPIRUBICIN [Concomitant]
     Active Substance: EPIRUBICIN
     Indication: Acute myeloid leukaemia

REACTIONS (6)
  - COVID-19 pneumonia [Unknown]
  - Interstitial lung disease [Recovering/Resolving]
  - Immunodeficiency common variable [Recovering/Resolving]
  - Cardiomyopathy [Unknown]
  - Mycoplasma infection [Unknown]
  - Infection [Unknown]
